FAERS Safety Report 7359531-7 (Version None)
Quarter: 2011Q1

REPORT INFORMATION
  Report Type: 
  Country: None (occurrence: None)
  Receive Date: 20110317
  Receipt Date: 20110302
  Transmission Date: 20110831
  Serious: Yes (Hospitalization)
  Sender: FDA-Public Use
  Company Number: JP-BAYER-2011-015597

PATIENT
  Age: 79 Year
  Sex: Female

DRUGS (6)
  1. TRICHLORMETHIAZIDE [Concomitant]
     Dosage: 1 MG, QD
     Route: 048
  2. ASPIRIN [Suspect]
     Indication: LACUNAR INFARCTION
     Dosage: 100 MG, QD
     Route: 048
  3. AMLODIPINE BESYLATE [Concomitant]
     Dosage: 5 MG, QD
     Route: 048
  4. TRIAZOLAM [Concomitant]
     Dosage: 0.125 MG, QD
     Route: 048
  5. PITAVASTATIN CALCIUM [Concomitant]
     Dosage: 1 MG, QD
     Route: 048
  6. TELMISARTAN [BOEHRINGER INGELHEIM] [Suspect]
     Dosage: 40 MG, QD
     Route: 048

REACTIONS (1)
  - SMALL INTESTINAL HAEMORRHAGE [None]
